FAERS Safety Report 14678020 (Version 1)
Quarter: 2018Q1

REPORT INFORMATION
  Report Type: Spontaneous
  Country: ES (occurrence: ES)
  Receive Date: 20180326
  Receipt Date: 20180326
  Transmission Date: 20180509
  Serious: Yes (Hospitalization)
  Sender: FDA-Public Use
  Company Number: ES-UCBSA-2018011855

PATIENT
  Age: 38 Year
  Sex: Male

DRUGS (3)
  1. FYCOMPA [Suspect]
     Active Substance: PERAMPANEL
     Indication: PARTIAL SEIZURES
     Dosage: UNK
  2. RIVOTRIL [Concomitant]
     Active Substance: CLONAZEPAM
     Indication: PRODUCT USED FOR UNKNOWN INDICATION
  3. KEPPRA [Suspect]
     Active Substance: LEVETIRACETAM
     Indication: PARTIAL SEIZURES
     Dosage: UNK

REACTIONS (2)
  - Conduct disorder [Recovering/Resolving]
  - Psychotic disorder [Recovering/Resolving]

NARRATIVE: CASE EVENT DATE: 2016
